FAERS Safety Report 15545141 (Version 2)
Quarter: 2018Q4

REPORT INFORMATION
  Report Type: Spontaneous
  Country: US (occurrence: US)
  Receive Date: 20181024
  Receipt Date: 20181220
  Transmission Date: 20190205
  Serious: No
  Sender: FDA-Public Use
  Company Number: US-GLENMARK PHARMACEUTICALS-2018GMK037256

PATIENT

DRUGS (4)
  1. ASHLYNA [Suspect]
     Active Substance: ETHINYL ESTRADIOL\LEVONORGESTREL
     Indication: ENDOMETRIOSIS
     Dosage: UNK UNK, OD
     Route: 048
     Dates: start: 201805
  2. ADVIL (MEFENAMIC ACID) [Concomitant]
     Active Substance: MEFENAMIC ACID
     Indication: PAIN
     Dosage: UNK, PRN (3 TO 4 TABLETS)
     Route: 048
  3. ZYRTEC [Concomitant]
     Active Substance: CETIRIZINE HYDROCHLORIDE
     Indication: HYPERSENSITIVITY
     Dosage: UNK, PRN (AS NEEDED)
     Route: 048
  4. DULERA [Concomitant]
     Active Substance: FORMOTEROL FUMARATE DIHYDRATE\MOMETASONE FUROATE
     Indication: ASTHMA
     Dosage: UNK (UNSPECIFIED DATE (6 MONTHS)
     Route: 045

REACTIONS (6)
  - Breast enlargement [Not Recovered/Not Resolved]
  - Product quality issue [Unknown]
  - Breast pain [Not Recovered/Not Resolved]
  - Hot flush [Not Recovered/Not Resolved]
  - Product use in unapproved indication [Unknown]
  - Breast tenderness [Not Recovered/Not Resolved]

NARRATIVE: CASE EVENT DATE: 201805
